FAERS Safety Report 16260156 (Version 1)
Quarter: 2019Q2

REPORT INFORMATION
  Report Type: Spontaneous
  Country: US (occurrence: US)
  Receive Date: 20190326
  Receipt Date: 20190326
  Transmission Date: 20190711
  Serious: Yes (Hospitalization)
  Sender: FDA-Public Use
  Company Number: None

PATIENT
  Age: 46 Year
  Sex: Male
  Weight: 101 kg

DRUGS (1)
  1. DAPTOMYCIN. [Suspect]
     Active Substance: DAPTOMYCIN
     Route: 042
     Dates: start: 20190126, end: 20190131

REACTIONS (3)
  - Respiratory failure [None]
  - Dyspnoea [None]
  - Eosinophilic pneumonia [None]

NARRATIVE: CASE EVENT DATE: 20190126
